FAERS Safety Report 6332792-9 (Version None)
Quarter: 2009Q3

REPORT INFORMATION
  Report Type: 
  Country: None (occurrence: None)
  Receive Date: 20090828
  Receipt Date: 20090821
  Transmission Date: 20100115
  Serious: Yes (Other)
  Sender: FDA-Public Use
  Company Number: B0589980A

PATIENT
  Age: 56 Year
  Sex: Male

DRUGS (1)
  1. ALKERAN [Suspect]
     Route: 042

REACTIONS (2)
  - BLOOD AMYLASE INCREASED [None]
  - SALIVARY GLAND PAIN [None]
